FAERS Safety Report 12873987 (Version 1)
Quarter: 2016Q4

REPORT INFORMATION
  Report Type: Report from Study
  Country: CO (occurrence: CO)
  Receive Date: 20161021
  Receipt Date: 20161021
  Transmission Date: 20170207
  Serious: Yes (Hospitalization)
  Sender: FDA-Public Use
  Company Number: CO-JNJFOC-20161014274

PATIENT
  Age: 69 Year
  Sex: Female
  Weight: 66 kg

DRUGS (2)
  1. STELARA [Suspect]
     Active Substance: USTEKINUMAB
     Indication: PSORIASIS
     Route: 058
     Dates: start: 20160705
  2. STELARA [Suspect]
     Active Substance: USTEKINUMAB
     Indication: PSORIASIS
     Route: 058
     Dates: start: 20130515

REACTIONS (2)
  - Bleeding varicose vein [Recovering/Resolving]
  - Hepatic cirrhosis [Recovering/Resolving]

NARRATIVE: CASE EVENT DATE: 20160814
